FAERS Safety Report 5232872-5 (Version None)
Quarter: 2007Q1

REPORT INFORMATION
  Report Type: 
  Country: None (occurrence: None)
  Receive Date: 20061204
  Receipt Date: 20060912
  Transmission Date: 20070707
  Serious: No
  Sender: FDA-Public Use
  Company Number: 2006-BP-10150BP

PATIENT
  Age: 82 Year
  Sex: Female

DRUGS (9)
  1. SPIRIVA [Suspect]
     Indication: CHRONIC OBSTRUCTIVE PULMONARY DISEASE
     Dosage: 18 MCG (18 MCG,1 IN 1 D),IH
     Dates: start: 20060801, end: 20060801
  2. TOPROL-XL [Concomitant]
  3. HTN MED (ANTIHYPERTENSIVES) [Concomitant]
  4. COZAAR [Concomitant]
  5. NORVASC [Concomitant]
  6. PROTONIX (AMLODIPINE) [Concomitant]
  7. CALTRATE (CALCIUM CARBONATE) [Concomitant]
  8. ACTONEL [Concomitant]
  9. WARFARIN SODIUM [Concomitant]

REACTIONS (1)
  - DRUG INEFFECTIVE [None]
